FAERS Safety Report 18889765 (Version 1)
Quarter: 2021Q1

REPORT INFORMATION
  Report Type: Report from Study
  Country: BR (occurrence: BR)
  Receive Date: 20210213
  Receipt Date: 20210213
  Transmission Date: 20210420
  Serious: Yes (Other)
  Sender: FDA-Public Use
  Company Number: NVSC2021BR028499

PATIENT
  Age: 59 Year
  Sex: Female

DRUGS (2)
  1. COSENTYX [Suspect]
     Active Substance: SECUKINUMAB
     Indication: PSORIASIS
     Dosage: 150 MG
     Route: 065
     Dates: start: 201704
  2. COSENTYX [Suspect]
     Active Substance: SECUKINUMAB
     Dosage: 150 MG
     Route: 065
     Dates: start: 20210120

REACTIONS (14)
  - Psoriasis [Recovering/Resolving]
  - Dry skin [Unknown]
  - Wound [Unknown]
  - Panic disorder [Unknown]
  - Anxiety [Unknown]
  - Gait disturbance [Unknown]
  - Inflammation [Unknown]
  - Choking [Unknown]
  - Onychomadesis [Unknown]
  - Abdominal discomfort [Unknown]
  - Labyrinthitis [Unknown]
  - Erythema [Unknown]
  - Vaginal lesion [Unknown]
  - Enuresis [Recovering/Resolving]

NARRATIVE: CASE EVENT DATE: 202012
